FAERS Safety Report 10063669 (Version 1)
Quarter: 2014Q2

REPORT INFORMATION
  Report Type: Spontaneous
  Country: FR (occurrence: FR)
  Receive Date: 20140407
  Receipt Date: 20140407
  Transmission Date: 20141212
  Serious: Yes (Hospitalization)
  Sender: FDA-Public Use
  Company Number: PHHY2014FR041115

PATIENT
  Age: 62 Year
  Sex: Female

DRUGS (13)
  1. VOLTARENE [Suspect]
     Dosage: 6 DF, DAILY
     Dates: start: 201312, end: 201401
  2. LAMALINE [Suspect]
     Indication: MUSCULOSKELETAL CHEST PAIN
     Dosage: UNK UKN, UNK
     Dates: start: 201312, end: 201401
  3. INEXIUM [Concomitant]
     Dosage: 40 MG, QD
  4. ATARAX [Concomitant]
     Dosage: 25 MG, BID
  5. AVLOCARDYL [Concomitant]
     Dosage: 40 MG, QD
  6. APROVEL [Concomitant]
     Dosage: 75 MG, QD
  7. VITAMIN B-1 [Concomitant]
     Dosage: UNK UKN, UNK
  8. VITAMIN B6 [Concomitant]
     Dosage: UNK UKN, UNK
  9. AOTAL [Concomitant]
     Dosage: 2 DF, TID
  10. DUPHALAC [Concomitant]
     Dosage: 1 BAG, TID
  11. NOVORAPID [Concomitant]
     Dosage: 12 IU, QD
  12. LEVEMIR [Concomitant]
     Dosage: UNK UKN, 18 IU IN MORNING AND 14 IU IN EVENING
  13. NOVONORM [Concomitant]
     Dosage: 3 MG, BID

REACTIONS (3)
  - Cholestasis [Recovered/Resolved]
  - Hepatitis acute [Recovered/Resolved]
  - Jaundice [Recovered/Resolved]
